FAERS Safety Report 7658330-6 (Version None)
Quarter: 2011Q3

REPORT INFORMATION
  Report Type: 
  Country: None (occurrence: None)
  Receive Date: 20110802
  Receipt Date: 20110719
  Transmission Date: 20111222
  Serious: Yes (Other)
  Sender: FDA-Public Use
  Company Number: 2011AP001544

PATIENT
  Age: 39 Year
  Sex: Male

DRUGS (7)
  1. DIAZEPAM [Suspect]
     Indication: PRODUCT USED FOR UNKNOWN INDICATION
  2. ZUCLOPENTHIXOL DIHYDROCHLORIDE (ZUCLOPENTHIXOL DIHYDROCHLORIDE) [Concomitant]
  3. ZUCLOPENTHIXOL HYDROCHLORIDE (ZUCLOPENTHIXOL HYDROCHLORIDE) [Concomitant]
  4. ZOPICLONE (ZOPICLONE) [Suspect]
     Indication: PRODUCT USED FOR UNKNOWN INDICATION
  5. ZUCLOPENTHIXOL ACETATE (ZUCLOPENTHIXOL ACETATE) [Concomitant]
  6. LANSOPRAZOLE [Suspect]
     Indication: PRODUCT USED FOR UNKNOWN INDICATION
  7. CITALOPRAM HYDROBROMIDE [Suspect]
     Indication: PRODUCT USED FOR UNKNOWN INDICATION

REACTIONS (5)
  - FEELING ABNORMAL [None]
  - THERMAL BURN [None]
  - CONFUSIONAL STATE [None]
  - LOSS OF CONSCIOUSNESS [None]
  - BALANCE DISORDER [None]
